FAERS Safety Report 8959452 (Version 2)
Quarter: 2013Q1

REPORT INFORMATION
  Report Type: Spontaneous
  Country: DE (occurrence: DE)
  Receive Date: 20121212
  Receipt Date: 20130111
  Transmission Date: 20140127
  Serious: Yes (Hospitalization)
  Sender: FDA-Public Use
  Company Number: DE-ROCHE-1167934

PATIENT
  Sex: Female

DRUGS (18)
  1. LUCENTIS [Suspect]
     Indication: AGE-RELATED MACULAR DEGENERATION
     Route: 050
     Dates: start: 20110908
  2. LUCENTIS [Suspect]
     Route: 050
     Dates: start: 20111004
  3. LUCENTIS [Suspect]
     Route: 050
     Dates: start: 20111108
  4. LUCENTIS [Suspect]
     Route: 050
     Dates: start: 20120529
  5. LUCENTIS [Suspect]
     Route: 050
     Dates: start: 20120626
  6. LUCENTIS [Suspect]
     Route: 050
     Dates: start: 20120710
  7. LUCENTIS [Suspect]
     Route: 050
     Dates: start: 20120724
  8. LUCENTIS [Suspect]
     Route: 050
     Dates: start: 20120807
  9. LUCENTIS [Suspect]
     Route: 050
     Dates: start: 20120904
  10. LUCENTIS [Suspect]
     Route: 050
     Dates: start: 20121204
  11. PANTOPRAZOLE [Concomitant]
  12. MICTONORM [Concomitant]
  13. BIOTIN [Concomitant]
  14. SIMVASTATIN [Concomitant]
  15. ASS [Concomitant]
     Route: 065
     Dates: start: 20111004
  16. ASS [Concomitant]
     Route: 065
     Dates: start: 20111108
  17. ASS [Concomitant]
     Route: 065
     Dates: start: 20120904
  18. ASS [Concomitant]
     Route: 065
     Dates: start: 20121204

REACTIONS (2)
  - Cerebrovascular accident [Not Recovered/Not Resolved]
  - Inappropriate schedule of drug administration [Unknown]
